FAERS Safety Report 17583998 (Version 1)
Quarter: 2020Q1

REPORT INFORMATION
  Report Type: Spontaneous
  Country: GB (occurrence: GB)
  Receive Date: 20200326
  Receipt Date: 20200326
  Transmission Date: 20200409
  Serious: Yes (Other)
  Sender: FDA-Public Use
  Company Number: GB-SHILPA MEDICARE LIMITED-SML-GB-2020-00127

PATIENT
  Sex: Male

DRUGS (11)
  1. IMATINIB, UNKNOWN [Suspect]
     Active Substance: IMATINIB
     Indication: CHRONIC MYELOID LEUKAEMIA
     Dosage: UNKNOWN
     Route: 065
     Dates: start: 200403, end: 200910
  2. PONATINIB [Suspect]
     Active Substance: PONATINIB
     Indication: CHRONIC MYELOID LEUKAEMIA
     Dosage: UNK
     Route: 065
     Dates: start: 2016
  3. HYDROXYCARBAMIDE [Suspect]
     Active Substance: HYDROXYUREA
     Indication: CHRONIC MYELOID LEUKAEMIA
     Dosage: UNK
     Route: 065
     Dates: start: 2018
  4. NILOTINIB [Suspect]
     Active Substance: NILOTINIB
     Indication: CHRONIC MYELOID LEUKAEMIA
     Dosage: 400 MG, BID
     Route: 065
     Dates: start: 201106
  5. AMBRISENTAN [Suspect]
     Active Substance: AMBRISENTAN
     Indication: CHRONIC MYELOID LEUKAEMIA
     Route: 065
  6. IMATINIB, UNKNOWN [Suspect]
     Active Substance: IMATINIB
     Route: 065
     Dates: start: 2018
  7. IMATINIB, UNKNOWN [Suspect]
     Active Substance: IMATINIB
     Route: 065
     Dates: start: 2018
  8. TADALAFIL. [Suspect]
     Active Substance: TADALAFIL
     Indication: CHRONIC MYELOID LEUKAEMIA
     Dosage: UNK
     Route: 065
  9. BOSUTINIB [Suspect]
     Active Substance: BOSUTINIB
     Indication: CHRONIC MYELOID LEUKAEMIA
     Dosage: 500 MG, QD
     Route: 065
     Dates: start: 201312
  10. IMATINIB, UNKNOWN [Suspect]
     Active Substance: IMATINIB
     Indication: CHRONIC MYELOID LEUKAEMIA
     Dosage: UNKNOWN
     Route: 065
     Dates: start: 200403, end: 200910
  11. DASATINIB. [Suspect]
     Active Substance: DASATINIB
     Indication: CHRONIC MYELOID LEUKAEMIA
     Dosage: UNK
     Route: 065
     Dates: start: 200910

REACTIONS (6)
  - Drug resistance [Unknown]
  - Drug intolerance [Unknown]
  - Blood pH increased [Unknown]
  - Pulmonary hypertension [Recovering/Resolving]
  - Pleural effusion [Unknown]
  - Cytogenetic analysis abnormal [Unknown]
